FAERS Safety Report 24305669 (Version 3)
Quarter: 2024Q4

REPORT INFORMATION
  Report Type: Report from Study
  Country: US (occurrence: US)
  Receive Date: 20240911
  Receipt Date: 20241018
  Transmission Date: 20250115
  Serious: Yes (Other)
  Sender: ABBVIE
  Company Number: US-ABBVIE-5909003

PATIENT
  Sex: Female
  Weight: 66 kg

DRUGS (9)
  1. RINVOQ [Suspect]
     Active Substance: UPADACITINIB
     Indication: Rheumatoid arthritis
     Dosage: FORM STRENGTH: 30 MG,?STOP DATE: 2024
     Route: 048
     Dates: start: 20240520
  2. AMLODIPINE [Concomitant]
     Active Substance: AMLODIPINE BESYLATE
     Indication: Hypertension
  3. ATENOLOL [Concomitant]
     Active Substance: ATENOLOL
     Indication: Hypertension
  4. ASPIRIN [Concomitant]
     Active Substance: ASPIRIN
     Indication: Cardiac murmur
  5. PRILOSEC [Concomitant]
     Active Substance: OMEPRAZOLE MAGNESIUM
     Indication: Gastrooesophageal reflux disease
  6. LOSARTAN [Concomitant]
     Active Substance: LOSARTAN
     Indication: Hypertension
  7. ATORVASTATIN [Concomitant]
     Active Substance: ATORVASTATIN
     Indication: Blood cholesterol increased
  8. PLAQUENIL [Concomitant]
     Active Substance: HYDROXYCHLOROQUINE SULFATE
     Indication: Arthritis
  9. ARAVA [Suspect]
     Active Substance: LEFLUNOMIDE
     Indication: Product used for unknown indication
     Route: 065

REACTIONS (8)
  - Basal cell carcinoma [Recovered/Resolved]
  - Rash papular [Not Recovered/Not Resolved]
  - Fungal infection [Not Recovered/Not Resolved]
  - Hepatic enzyme increased [Recovering/Resolving]
  - Arthropathy [Not Recovered/Not Resolved]
  - Rash papular [Recovered/Resolved]
  - Urticaria [Unknown]
  - Scar [Unknown]

NARRATIVE: CASE EVENT DATE: 20240101
